FAERS Safety Report 20085219 (Version 1)
Quarter: 2021Q4

REPORT INFORMATION
  Report Type: Spontaneous
  Country: ID (occurrence: ID)
  Receive Date: 20211118
  Receipt Date: 20211118
  Transmission Date: 20220303
  Serious: Yes (Death, Other)
  Sender: FDA-Public Use
  Company Number: ID-BAYER-2021A251649

PATIENT
  Age: 31 Year
  Sex: Female

DRUGS (2)
  1. ULTRAVIST [Suspect]
     Active Substance: IOPROMIDE
     Indication: Computerised tomogram head
     Dosage: UNK, ONCE
     Dates: start: 20211115, end: 20211115
  2. ULTRAVIST [Suspect]
     Active Substance: IOPROMIDE
     Indication: Meningitis

REACTIONS (3)
  - Death [Fatal]
  - Loss of consciousness [None]
  - Asthenia [None]

NARRATIVE: CASE EVENT DATE: 20211115
